FAERS Safety Report 11488221 (Version 1)
Quarter: 2015Q3

REPORT INFORMATION
  Report Type: Spontaneous
  Country: US (occurrence: US)
  Receive Date: 20150910
  Receipt Date: 20150910
  Transmission Date: 20151125
  Serious: No
  Sender: FDA-Public Use
  Company Number: US-ROCHE-1424076

PATIENT
  Sex: Female

DRUGS (10)
  1. FISH OIL [Concomitant]
     Active Substance: FISH OIL
  2. PEGASYS [Suspect]
     Active Substance: PEGINTERFERON ALFA-2A
     Indication: CHRONIC HEPATITIS C
     Dosage: 0.5ML
     Route: 058
     Dates: start: 20140508
  3. IBUPROFEN. [Concomitant]
     Active Substance: IBUPROFEN
  4. VITAMIN B12 [Concomitant]
     Active Substance: CYANOCOBALAMIN
  5. MUCINEX [Concomitant]
     Active Substance: GUAIFENESIN
  6. FUROSEMIDE. [Concomitant]
     Active Substance: FUROSEMIDE
  7. LISINOPRIL. [Concomitant]
     Active Substance: LISINOPRIL
  8. MSM [Concomitant]
     Active Substance: DIMETHYL SULFONE
  9. HCTZ [Concomitant]
     Active Substance: HYDROCHLOROTHIAZIDE
  10. GAS-X [Concomitant]
     Active Substance: DIMETHICONE

REACTIONS (8)
  - Abdominal distension [Unknown]
  - Pyrexia [Unknown]
  - Tremor [Unknown]
  - Fatigue [Unknown]
  - Nail growth abnormal [Unknown]
  - Alopecia [Unknown]
  - Mood altered [Unknown]
  - Asthenia [Unknown]
